FAERS Safety Report 11772703 (Version 1)
Quarter: 2015Q4

REPORT INFORMATION
  Report Type: Spontaneous
  Country: IT (occurrence: IT)
  Receive Date: 20151124
  Receipt Date: 20151124
  Transmission Date: 20160304
  Serious: Yes (Hospitalization)
  Sender: FDA-Public Use
  Company Number: IT-ASTRAZENECA-2015SF12782

PATIENT
  Age: 24206 Day
  Sex: Female

DRUGS (5)
  1. DICLOREUM [Suspect]
     Active Substance: DICLOFENAC SODIUM
     Indication: DRUG ABUSE
     Dosage: 150 MG PROLONGED-RELEASE HARD CAPSULES, 7 CAPSULES TOTAL
     Route: 048
     Dates: start: 20150927, end: 20150927
  2. OMEGA-3 ACIDS [Suspect]
     Active Substance: OMEGA-3 FATTY ACIDS
     Indication: INTENTIONAL SELF-INJURY
     Dates: start: 20150927, end: 20150927
  3. COLVER [Suspect]
     Active Substance: CARVEDILOL
     Indication: DRUG ABUSE
     Dosage: 6.25 MG TABLETS, 13 TABLETS TOTAL
     Route: 048
     Dates: start: 20150927, end: 20150927
  4. MUSCORIL [Suspect]
     Active Substance: THIOCOLCHICOSIDE
     Indication: DRUG ABUSE
     Dosage: 8 MG ORODISPERSIBLE TABLETS, 8 TABLETS TOTAL
     Route: 048
     Dates: start: 20150927, end: 20150927
  5. ARIMIDEX [Suspect]
     Active Substance: ANASTROZOLE
     Indication: DRUG ABUSE
     Dosage: 1 MG TABLETS, 18 TABLETS TOTAL
     Route: 048
     Dates: start: 20150927, end: 20150927

REACTIONS (2)
  - Drug abuse [Recovered/Resolved]
  - Intentional self-injury [Recovered/Resolved]

NARRATIVE: CASE EVENT DATE: 20150927
